FAERS Safety Report 13367793 (Version 1)
Quarter: 2017Q1

REPORT INFORMATION
  Report Type: Spontaneous
  Country: US (occurrence: US)
  Receive Date: 20170323
  Receipt Date: 20170323
  Transmission Date: 20170429
  Serious: Yes (Life-Threatening, Hospitalization, Disabling, Other)
  Sender: FDA-Public Use
  Company Number: None

PATIENT
  Age: 23 Year
  Sex: Female
  Weight: 55.35 kg

DRUGS (5)
  1. HUMIRA [Concomitant]
     Active Substance: ADALIMUMAB
  2. VITAMIN A [Concomitant]
     Active Substance: VITAMIN A
  3. PREDNISONE. [Suspect]
     Active Substance: PREDNISONE
     Indication: RHEUMATOID ARTHRITIS
     Dosage: ?          QUANTITY:1 INFUSION;OTHER FREQUENCY:ONCE EVERY 2 WEEKS;?
     Route: 042
  4. ALEVE [Concomitant]
     Active Substance: NAPROXEN SODIUM
  5. TAZORAC [Concomitant]
     Active Substance: TAZAROTENE

REACTIONS (8)
  - Contusion [None]
  - Cognitive disorder [None]
  - Rash [None]
  - Reading disorder [None]
  - Formication [None]
  - Crying [None]
  - Brain injury [None]
  - Mood swings [None]

NARRATIVE: CASE EVENT DATE: 20110401
